FAERS Safety Report 12637038 (Version 1)
Quarter: 2016Q3

REPORT INFORMATION
  Report Type: Not Available
  Country: US (occurrence: US)
  Receive Date: 20160809
  Receipt Date: 20160809
  Transmission Date: 20161109
  Serious: Yes (Hospitalization, Disabling)
  Sender: FDA-Public Use
  Company Number: US-BEH-2014042182

PATIENT
  Age: 57 Year
  Sex: Male
  Weight: 95 kg

DRUGS (2)
  1. PRIVIGEN [Suspect]
     Active Substance: HUMAN IMMUNOGLOBULIN G
     Indication: GUILLAIN-BARRE SYNDROME
     Route: 041
     Dates: start: 20130502, end: 20130506
  2. PRIVIGEN [Suspect]
     Active Substance: HUMAN IMMUNOGLOBULIN G
     Route: 041
     Dates: start: 20130502, end: 20130506

REACTIONS (5)
  - Chromaturia [Unknown]
  - Rash [Unknown]
  - Haemolysis [Unknown]
  - Jaundice [Unknown]
  - Dialysis [Unknown]

NARRATIVE: CASE EVENT DATE: 20130506
